FAERS Safety Report 19615090 (Version 1)
Quarter: 2021Q3

REPORT INFORMATION
  Report Type: Not Available
  Country: None (occurrence: None)
  Receive Date: 20210727
  Receipt Date: 20210727
  Transmission Date: 20211014
  Serious: No
  Sender: FDA-Public Use
  Company Number: US-AKORN-169603

PATIENT
  Age: 68 Year
  Sex: Female

DRUGS (1)
  1. COSOPT PF [Suspect]
     Active Substance: DORZOLAMIDE HYDROCHLORIDE\TIMOLOL MALEATE

REACTIONS (5)
  - Eyelid margin crusting [Recovered/Resolved]
  - Eyelid pain [Recovered/Resolved]
  - Intentional product use issue [Recovered/Resolved]
  - Dysgeusia [Not Recovered/Not Resolved]
  - Eyelid irritation [Recovered/Resolved]
